FAERS Safety Report 11126584 (Version 2)
Quarter: 2015Q2

REPORT INFORMATION
  Report Type: Spontaneous
  Country: US (occurrence: US)
  Receive Date: 20150520
  Receipt Date: 20150527
  Transmission Date: 20150821
  Serious: Yes (Other)
  Sender: FDA-Public Use
  Company Number: US-UNITED THERAPEUTICS-UNT-2015-005833

PATIENT
  Age: 57 Year
  Sex: Female
  Weight: 63.49 kg

DRUGS (2)
  1. REMODULIN [Suspect]
     Active Substance: TREPROSTINIL
     Indication: PULMONARY HYPERTENSION
     Dosage: 0.025 ?G/KG, CONTINUING
     Route: 041
     Dates: start: 20141113
  2. WARFARIN [Concomitant]
     Active Substance: WARFARIN
     Indication: PRODUCT USED FOR UNKNOWN INDICATION

REACTIONS (3)
  - Epistaxis [Unknown]
  - Haemoptysis [Unknown]
  - Nasal discomfort [Unknown]

NARRATIVE: CASE EVENT DATE: 201505
